FAERS Safety Report 10520188 (Version 1)
Quarter: 2014Q4

REPORT INFORMATION
  Report Type: Spontaneous
  Country: DE (occurrence: DE)
  Receive Date: 20141015
  Receipt Date: 20141015
  Transmission Date: 20150528
  Serious: Yes (Hospitalization)
  Sender: FDA-Public Use
  Company Number: DE-ACTELION-A-US2014-106605

PATIENT
  Age: 81 Year
  Sex: Female
  Weight: 86.17 kg

DRUGS (8)
  1. NEBIVOLOL [Concomitant]
     Active Substance: NEBIVOLOL
  2. XARELTO [Concomitant]
     Active Substance: RIVAROXABAN
  3. VENTAVIS [Suspect]
     Active Substance: ILOPROST
     Indication: PULMONARY HYPERTENSION
     Dosage: UNK
     Route: 055
     Dates: start: 201408, end: 201408
  4. RIOCIGUAT [Suspect]
     Active Substance: RIOCIGUAT
     Dosage: 1 MG, UNK
     Route: 065
     Dates: start: 201406, end: 20140724
  5. RIOCIGUAT [Suspect]
     Active Substance: RIOCIGUAT
     Indication: PULMONARY HYPERTENSION
     Dosage: 1 MG, UNK
     Route: 065
     Dates: start: 201406, end: 20140724
  6. CO-DIOVAN [Concomitant]
     Active Substance: HYDROCHLOROTHIAZIDE\VALSARTAN
  7. RIOCIGUAT [Suspect]
     Active Substance: RIOCIGUAT
     Dosage: 1.5 MG, TID
     Route: 065
     Dates: start: 201406, end: 20140724
  8. TORASEMIDE [Concomitant]
     Active Substance: TORSEMIDE

REACTIONS (9)
  - Night sweats [Unknown]
  - Asthenia [Unknown]
  - Abdominal pain [Recovered/Resolved]
  - Pruritus [Unknown]
  - Dizziness [Unknown]
  - Weight decreased [Unknown]
  - Headache [Unknown]
  - Gastrointestinal disorder [Recovered/Resolved]
  - Nausea [Unknown]
